FAERS Safety Report 9828730 (Version 3)
Quarter: 2014Q2

REPORT INFORMATION
  Report Type: Spontaneous
  Country: US (occurrence: US)
  Receive Date: 20140117
  Receipt Date: 20140415
  Transmission Date: 20141212
  Serious: Yes (Hospitalization, Other)
  Sender: FDA-Public Use
  Company Number: US-RB-062586-14

PATIENT
  Age: 56 Year
  Sex: Female

DRUGS (6)
  1. SUBOXONE FILM [Suspect]
     Dosage: SUBOXONE FILM; TAKING IN THE EVENING
     Route: 060
     Dates: start: 2003
  2. SUBOXONE FILM [Suspect]
     Indication: DRUG DEPENDENCE
     Dosage: SUBOXONE FILM; TAKING IN THE AM
     Route: 060
     Dates: start: 2003
  3. SUBOXONE FILM [Suspect]
     Dosage: SUBOXONE FILM; TAPERING DOSE
     Route: 060
     Dates: start: 201309, end: 201309
  4. SUBOXONE TABLET [Suspect]
     Indication: DRUG DEPENDENCE
     Dosage: REPORTED AS 2 MG SL TABLET 2 TABLETS DAILY
     Route: 060
     Dates: start: 20130926, end: 20130927
  5. NICOTINE [Concomitant]
     Indication: PRODUCT USED FOR UNKNOWN INDICATION
     Dosage: DOSING DETAILS UNKNOWN; USING DAILY
     Route: 065
  6. ADVIL [Concomitant]
     Indication: PRODUCT USED FOR UNKNOWN INDICATION
     Dosage: DOSING DETAILS UNKNOWN
     Route: 065

REACTIONS (14)
  - Mental status changes [Recovered/Resolved]
  - Dizziness [Unknown]
  - VIIth nerve paralysis [Recovered/Resolved]
  - Hyporesponsive to stimuli [Recovered/Resolved]
  - Miosis [Recovered/Resolved]
  - Convulsion [Recovered/Resolved]
  - Drug withdrawal syndrome [Recovered/Resolved]
  - Agitation [Recovered/Resolved]
  - Dysarthria [Recovered/Resolved]
  - Somnolence [Recovered/Resolved]
  - Restlessness [Recovered/Resolved]
  - Acute prerenal failure [Recovered/Resolved]
  - Hyperglycaemia [Recovered/Resolved]
  - Wrong technique in drug usage process [Recovered/Resolved]
